FAERS Safety Report 24624220 (Version 1)
Quarter: 2024Q4

REPORT INFORMATION
  Report Type: Spontaneous
  Country: US (occurrence: None)
  Receive Date: 20241115
  Receipt Date: 20241115
  Transmission Date: 20250115
  Serious: Yes (Hospitalization)
  Sender: Public
  Company Number: None

PATIENT
  Age: 6 Year
  Sex: Male
  Weight: 25.4 kg

DRUGS (1)
  1. CALASPARGASE PEGOL-MKNL [Suspect]
     Active Substance: CALASPARGASE PEGOL-MKNL

REACTIONS (10)
  - Infusion related reaction [None]
  - Dyspnoea [None]
  - Flushing [None]
  - Rash erythematous [None]
  - Nausea [None]
  - Wheezing [None]
  - Oxygen saturation decreased [None]
  - Heart rate increased [None]
  - Anaphylactic reaction [None]
  - Hypersensitivity [None]

NARRATIVE: CASE EVENT DATE: 20241112
